FAERS Safety Report 9193540 (Version 1)
Quarter: 2013Q1

REPORT INFORMATION
  Report Type: Spontaneous
  Country: US (occurrence: None)
  Receive Date: 20130325
  Receipt Date: 20130325
  Transmission Date: 20140127
  Serious: Yes (Hospitalization)
  Sender: FDA-Public Use
  Company Number: None

PATIENT
  Age: 62 Year
  Sex: Female

DRUGS (3)
  1. PEGASYS [Suspect]
     Indication: HEPATITIS C
     Route: 058
  2. RIBASPHERE [Suspect]
     Indication: HEPATITIS C
     Route: 048
  3. VICTRELIS [Concomitant]

REACTIONS (3)
  - Hypotension [None]
  - Dehydration [None]
  - Balance disorder [None]
